FAERS Safety Report 22098790 (Version 1)
Quarter: 2023Q1

REPORT INFORMATION
  Report Type: Spontaneous
  Country: US (occurrence: None)
  Receive Date: 20230314
  Receipt Date: 20230314
  Transmission Date: 20230418
  Serious: Yes (Death)
  Sender: FDA-Public Use
  Company Number: None

PATIENT
  Age: 75 Year
  Sex: Female

DRUGS (8)
  1. TOLVAPTAN [Suspect]
     Active Substance: TOLVAPTAN
     Indication: Hyponatraemia
     Dosage: FREQUENCY : DAILY;?
     Route: 048
     Dates: start: 20230215
  2. ASPIRIN [Concomitant]
     Active Substance: ASPIRIN
     Dates: start: 20230217
  3. ATORVASTATIN [Concomitant]
     Active Substance: ATORVASTATIN
     Dates: start: 20230217
  4. CARVEDILOL [Suspect]
     Active Substance: CARVEDILOL
     Dates: start: 20230217
  5. LISINOPRIL [Concomitant]
     Active Substance: LISINOPRIL
     Dates: start: 20230217
  6. PANTOPRAZOLE SODIUM [Concomitant]
     Active Substance: PANTOPRAZOLE SODIUM
     Dates: start: 20230217
  7. acetaminophen 325mg [Concomitant]
     Dates: start: 20230217
  8. ALPRAZOLAM [Concomitant]
     Active Substance: ALPRAZOLAM
     Dates: start: 20230217

REACTIONS (1)
  - Death [None]

NARRATIVE: CASE EVENT DATE: 20230314
